FAERS Safety Report 21020397 (Version 1)
Quarter: 2022Q2

REPORT INFORMATION
  Report Type: Spontaneous
  Country: IR (occurrence: IR)
  Receive Date: 20220629
  Receipt Date: 20220629
  Transmission Date: 20220721
  Serious: Yes (Death, Hospitalization)
  Sender: FDA-Public Use
  Company Number: IR-STRIDES ARCOLAB LIMITED-2022SP007808

PATIENT
  Age: 60 Year
  Sex: Female

DRUGS (2)
  1. ALPRAZOLAM [Suspect]
     Active Substance: ALPRAZOLAM
     Indication: Product used for unknown indication
     Dosage: UNK
     Route: 065
  2. AMPHETAMINE [Suspect]
     Active Substance: AMPHETAMINE
     Indication: Suicide attempt
     Dosage: UNK
     Route: 065

REACTIONS (6)
  - Cardio-respiratory arrest [Fatal]
  - Gastric perforation [Fatal]
  - Toxicity to various agents [Fatal]
  - Peritonitis [Fatal]
  - Depressed level of consciousness [Fatal]
  - Renal failure [Fatal]
